FAERS Safety Report 11579464 (Version 1)
Quarter: 2015Q3

REPORT INFORMATION
  Report Type: Spontaneous
  Country: FR (occurrence: FR)
  Receive Date: 20150930
  Receipt Date: 20150930
  Transmission Date: 20151125
  Serious: Yes (Other)
  Sender: FDA-Public Use
  Company Number: FR-PFIZER INC-2015321644

PATIENT
  Age: 75 Year
  Sex: Female

DRUGS (3)
  1. TIGECYCLINE. [Suspect]
     Active Substance: TIGECYCLINE
     Indication: KLEBSIELLA INFECTION
     Dosage: 100 MG, 2X/DAY
  2. TIENAM [Suspect]
     Active Substance: CILASTATIN SODIUM\IMIPENEM
     Indication: KLEBSIELLA INFECTION
  3. COLIMYCINE /00013203/ [Suspect]
     Active Substance: COLISTIMETHATE SODIUM
     Indication: KLEBSIELLA INFECTION

REACTIONS (4)
  - Cardiac failure [Recovered/Resolved]
  - Hypofibrinogenaemia [Recovered/Resolved]
  - Thrombocytopenia [Recovered/Resolved]
  - Product use issue [Recovered/Resolved]

NARRATIVE: CASE EVENT DATE: 2015
